FAERS Safety Report 11311308 (Version 1)
Quarter: 2015Q3

REPORT INFORMATION
  Report Type: Spontaneous
  Country: FR (occurrence: None)
  Receive Date: 20150723
  Receipt Date: 20150723
  Transmission Date: 20151125
  Serious: Yes (Life-Threatening)
  Sender: FDA-Public Use
  Company Number: FR-H14001-15-01355

PATIENT
  Age: 53 Year
  Sex: Male

DRUGS (2)
  1. CERUBIDINE [Suspect]
     Active Substance: DAUNORUBICIN HYDROCHLORIDE
     Indication: ACUTE MYELOID LEUKAEMIA
     Route: 042
     Dates: start: 20080313, end: 20080315
  2. ARACYTINE (CYTARABINE) (CYTARABINE) [Suspect]
     Active Substance: CYTARABINE
     Indication: ACUTE MYELOID LEUKAEMIA
     Route: 042
     Dates: start: 20080313, end: 20080319

REACTIONS (11)
  - Clostridium difficile infection [None]
  - Atrial fibrillation [None]
  - Erythema [None]
  - Diarrhoea [None]
  - Bone marrow failure [None]
  - Sepsis [None]
  - Toxic skin eruption [None]
  - Rash maculo-papular [None]
  - Hypokalaemia [None]
  - Acute kidney injury [None]
  - Arrhythmia [None]

NARRATIVE: CASE EVENT DATE: 20080315
